FAERS Safety Report 16660804 (Version 1)
Quarter: 2019Q3

REPORT INFORMATION
  Report Type: Spontaneous
  Country: JP (occurrence: JP)
  Receive Date: 20190802
  Receipt Date: 20190802
  Transmission Date: 20191004
  Serious: Yes (Other)
  Sender: FDA-Public Use
  Company Number: JP-BAYER-2019-140969

PATIENT
  Age: 78 Year
  Sex: Male

DRUGS (4)
  1. ESTRACYT [ESTRAMUSTINE MEGLUMINE PHOSPHATE] [Suspect]
     Active Substance: ESTRAMUSTINE PHOSPHATE MEGLUMINE
     Indication: HORMONE-REFRACTORY PROSTATE CANCER
  2. XOFIGO [Suspect]
     Active Substance: RADIUM RA-223 DICHLORIDE
     Indication: METASTASES TO BONE
     Dosage: EVERY 4 WEEKS
     Route: 042
     Dates: start: 20180907, end: 20190125
  3. XOFIGO [Suspect]
     Active Substance: RADIUM RA-223 DICHLORIDE
     Indication: HORMONE-REFRACTORY PROSTATE CANCER
  4. ESTRACYT [ESTRAMUSTINE MEGLUMINE PHOSPHATE] [Suspect]
     Active Substance: ESTRAMUSTINE PHOSPHATE MEGLUMINE
     Indication: METASTASES TO BONE

REACTIONS (1)
  - Deep vein thrombosis [Recovering/Resolving]

NARRATIVE: CASE EVENT DATE: 201811
